FAERS Safety Report 20743203 (Version 2)
Quarter: 2022Q2

REPORT INFORMATION
  Report Type: Spontaneous
  Country: US (occurrence: US)
  Receive Date: 20220425
  Receipt Date: 20220520
  Transmission Date: 20220720
  Serious: Yes (Death)
  Sender: FDA-Public Use
  Company Number: US-MTPC-MTDA2022-0010014

PATIENT

DRUGS (1)
  1. RADICAVA [Suspect]
     Active Substance: EDARAVONE
     Indication: Product used for unknown indication
     Dosage: UNK
     Route: 065

REACTIONS (2)
  - Death [Fatal]
  - Adverse drug reaction [Unknown]
